FAERS Safety Report 11610237 (Version 1)
Quarter: 2015Q4

REPORT INFORMATION
  Report Type: Spontaneous
  Country: US (occurrence: US)
  Receive Date: 20151008
  Receipt Date: 20151008
  Transmission Date: 20160304
  Serious: Yes (Hospitalization)
  Sender: FDA-Public Use
  Company Number: US-ROCHE-1642377

PATIENT
  Age: 40 Year
  Sex: Female

DRUGS (1)
  1. RITUXAN [Suspect]
     Active Substance: RITUXIMAB
     Indication: IMMUNE THROMBOCYTOPENIC PURPURA
     Dosage: MAINTAINACE DOSE
     Route: 065

REACTIONS (3)
  - Cardiovascular disorder [Unknown]
  - Cerebrovascular accident [Unknown]
  - Cerebral disorder [Unknown]
